FAERS Safety Report 21632815 (Version 2)
Quarter: 2023Q1

REPORT INFORMATION
  Report Type: Report from Study
  Country: US (occurrence: US)
  Receive Date: 20221123
  Receipt Date: 20230106
  Transmission Date: 20230417
  Serious: No
  Sender: FDA-Public Use
  Company Number: US-ABBVIE-22K-163-4499407-00

PATIENT
  Sex: Female

DRUGS (4)
  1. RINVOQ [Suspect]
     Active Substance: UPADACITINIB
     Indication: Rheumatoid arthritis
     Route: 048
  2. DUPIXENT [Suspect]
     Active Substance: DUPILUMAB
     Indication: Dermatitis atopic
     Dosage: STRENGTH OF 300MG/2ML
     Route: 065
     Dates: start: 20220501
  3. DUPIXENT [Suspect]
     Active Substance: DUPILUMAB
     Indication: Dermatitis atopic
     Dosage: STRENGTH OF 300MG/2ML
     Route: 065
  4. DUPIXENT [Suspect]
     Active Substance: DUPILUMAB
     Indication: Dermatitis atopic
     Dosage: 600 MG MILL
     Route: 065

REACTIONS (8)
  - Dizziness [Recovered/Resolved]
  - Drug hypersensitivity [Unknown]
  - Injection site pain [Unknown]
  - Balance disorder [Unknown]
  - Product preparation error [Unknown]
  - Headache [Unknown]
  - Blood test abnormal [Recovered/Resolved]
  - Condition aggravated [Not Recovered/Not Resolved]
